FAERS Safety Report 14987376 (Version 1)
Quarter: 2018Q2

REPORT INFORMATION
  Report Type: Spontaneous
  Country: US (occurrence: US)
  Receive Date: 20180518
  Receipt Date: 20180518
  Transmission Date: 20180711
  Serious: Yes (Death)
  Sender: FDA-Public Use
  Company Number: None

PATIENT

DRUGS (1)
  1. MEGESTROL ACETATE TABLETS USP, 20MG [Suspect]
     Active Substance: MEGESTROL ACETATE

REACTIONS (1)
  - Death [None]
